FAERS Safety Report 5510078-X (Version None)
Quarter: 2007Q4

REPORT INFORMATION
  Report Type: 
  Country: None (occurrence: None)
  Receive Date: 20071108
  Receipt Date: 20061120
  Transmission Date: 20080405
  Serious: No
  Sender: FDA-Public Use
  Company Number: US-ABBOTT-05P-163-0311696-00

PATIENT
  Age: 40 Year
  Sex: Male

DRUGS (7)
  1. TARKA [Suspect]
     Indication: HYPERTENSION
     Dosage: 2 MG/240MG DAILY
     Route: 048
     Dates: start: 20050901, end: 20050901
  2. GLYCERYL TRINITRATE [Suspect]
     Indication: CHEST PAIN
     Dates: start: 20050909
  3. ASPIRIN [Concomitant]
     Indication: DRUG USE FOR UNKNOWN INDICATION
  4. METOPROLOL TARTRATE [Concomitant]
     Indication: DRUG USE FOR UNKNOWN INDICATION
  5. VITAMINS [Concomitant]
     Indication: DRUG USE FOR UNKNOWN INDICATION
  6. FOLIC ACID [Concomitant]
     Indication: DRUG USE FOR UNKNOWN INDICATION
  7. GEN-NITRO [Concomitant]
     Indication: CHEST PAIN

REACTIONS (4)
  - DRUG INEFFECTIVE [None]
  - GINGIVAL BLEEDING [None]
  - GINGIVAL SWELLING [None]
  - HYPOAESTHESIA [None]
